FAERS Safety Report 5426452-6 (Version None)
Quarter: 2007Q3

REPORT INFORMATION
  Report Type: 
  Country: None (occurrence: None)
  Receive Date: 20070827
  Receipt Date: 20070820
  Transmission Date: 20080115
  Serious: Yes (Other)
  Sender: FDA-Public Use
  Company Number: JP-PFIZER INC-2007062075

PATIENT
  Sex: Male
  Weight: 60 kg

DRUGS (7)
  1. ATARAX [Suspect]
     Indication: DERMATITIS ATOPIC
     Dosage: DAILY DOSE:25MG-FREQ:FREQUENCY: QD
     Route: 048
  2. ALLELOCK [Suspect]
     Indication: DERMATITIS ATOPIC
     Dosage: DAILY DOSE:10MG-FREQ:FREQUENCY: BID
     Route: 048
  3. POLARAMINE [Suspect]
     Indication: DERMATITIS ATOPIC
     Dosage: DAILY DOSE:4MG-FREQ:FREQUENCY: BID
     Route: 048
  4. ONON [Concomitant]
     Route: 048
  5. ALLEGRA [Concomitant]
     Route: 048
  6. ANTIBIOTICS [Concomitant]
  7. ALL OTHER THERAPEUTIC PRODUCTS [Concomitant]

REACTIONS (1)
  - PROTEINURIA [None]
